FAERS Safety Report 9827510 (Version 1)
Quarter: 2014Q1

REPORT INFORMATION
  Report Type: Spontaneous
  Country: US (occurrence: US)
  Receive Date: 20140117
  Receipt Date: 20140117
  Transmission Date: 20141002
  Serious: No
  Sender: FDA-Public Use
  Company Number: US-BIOGENIDEC-2014BI000702

PATIENT
  Sex: Female

DRUGS (6)
  1. TECFIDERA [Suspect]
     Indication: MULTIPLE SCLEROSIS
     Route: 048
     Dates: start: 20131113, end: 20131119
  2. TECFIDERA [Suspect]
     Indication: MULTIPLE SCLEROSIS
     Route: 048
     Dates: start: 20131120
  3. NALTREXONE [Concomitant]
  4. CLONAZEPAM [Concomitant]
  5. WELLBUTRIN [Concomitant]
  6. AMPYRA ER [Concomitant]

REACTIONS (1)
  - Malaise [Recovered/Resolved]
